FAERS Safety Report 10028445 (Version 2)
Quarter: 2014Q1

REPORT INFORMATION
  Report Type: Spontaneous
  Country: US (occurrence: None)
  Receive Date: 20140307
  Receipt Date: 20140327
  Transmission Date: 20141002
  Serious: Yes (Hospitalization)
  Sender: FDA-Public Use
  Company Number: C14 007 AE

PATIENT
  Age: 19 Month
  Sex: Female
  Weight: 8.2 kg

DRUGS (4)
  1. FIRST OMEPRAZOLE RX [Suspect]
     Indication: GASTROOESOPHAGEAL REFLUX DISEASE
     Dosage: 4ML ORALLY TWICE DAILY??11 MONTYS (TOTAL)
     Route: 048
  2. PULMICORT (BUDESONIDE) [Concomitant]
  3. RSV VACCINE [Concomitant]
  4. OMEPRAZOLE [Concomitant]

REACTIONS (3)
  - Dystonia [None]
  - Dyskinesia [None]
  - Dyskinesia [None]
